FAERS Safety Report 6883829-X (Version None)
Quarter: 2010Q3

REPORT INFORMATION
  Report Type: 
  Country: None (occurrence: None)
  Receive Date: 20100729
  Receipt Date: 20100723
  Transmission Date: 20110219
  Serious: Yes (Hospitalization, Other)
  Sender: FDA-Public Use
  Company Number: US-BRISTOL-MYERS SQUIBB COMPANY-15204563

PATIENT
  Age: 46 Year
  Sex: Male

DRUGS (3)
  1. GLUCOPHAGE [Suspect]
  2. ACTOS [Suspect]
  3. PRILOSEC [Concomitant]

REACTIONS (10)
  - ABDOMINAL DISCOMFORT [None]
  - CONVULSION [None]
  - DRUG INTERACTION [None]
  - FALL [None]
  - GLYCOSYLATED HAEMOGLOBIN INCREASED [None]
  - NAUSEA [None]
  - NERVOUSNESS [None]
  - TOOTH LOSS [None]
  - TREMOR [None]
  - VISUAL ACUITY REDUCED [None]
